FAERS Safety Report 12026367 (Version 1)
Quarter: 2016Q1

REPORT INFORMATION
  Report Type: Report from Study
  Country: US (occurrence: US)
  Receive Date: 20160206
  Receipt Date: 20160206
  Transmission Date: 20160526
  Serious: Yes (Other)
  Sender: FDA-Public Use
  Company Number: US-ABBVIE-15K-163-1485520-00

PATIENT
  Age: 63 Year
  Sex: Female
  Weight: 83 kg

DRUGS (4)
  1. METHOTREXATE [Concomitant]
     Active Substance: METHOTREXATE
     Indication: RHEUMATOID ARTHRITIS
     Dosage: 25
     Route: 048
  2. PREDNISONE. [Concomitant]
     Active Substance: PREDNISONE
     Indication: RHEUMATOID ARTHRITIS
     Dosage: 10
     Route: 048
  3. HUMIRA [Suspect]
     Active Substance: ADALIMUMAB
     Indication: RHEUMATOID ARTHRITIS
     Route: 058
     Dates: start: 20050701, end: 20080730
  4. HUMIRA [Suspect]
     Active Substance: ADALIMUMAB
     Route: 058
     Dates: start: 200905

REACTIONS (14)
  - Peripheral swelling [Unknown]
  - Injury [Unknown]
  - Localised infection [Not Recovered/Not Resolved]
  - Device issue [Unknown]
  - Nodule [Recovered/Resolved]
  - Incorrect dose administered [Unknown]
  - Device issue [Unknown]
  - Streptococcal infection [Recovering/Resolving]
  - Pain in extremity [Unknown]
  - Nodule [Recovered/Resolved]
  - Incorrect dose administered [Unknown]
  - Staphylococcal infection [Recovering/Resolving]
  - Localised infection [Recovered/Resolved]
  - Scar [Not Recovered/Not Resolved]

NARRATIVE: CASE EVENT DATE: 2007
